FAERS Safety Report 24960619 (Version 2)
Quarter: 2025Q1

REPORT INFORMATION
  Report Type: Spontaneous
  Country: US (occurrence: US)
  Receive Date: 20250212
  Receipt Date: 20250213
  Transmission Date: 20250408
  Serious: Yes (Death)
  Sender: PFIZER
  Company Number: US-PFIZER INC-202500030419

PATIENT
  Age: 54 Year
  Sex: Female

DRUGS (1)
  1. ZIRABEV [Suspect]
     Active Substance: BEVACIZUMAB-BVZR

REACTIONS (1)
  - Death [Fatal]
